FAERS Safety Report 8972281 (Version 1)
Quarter: 2012Q4

REPORT INFORMATION
  Report Type: Spontaneous
  Country: US (occurrence: None)
  Receive Date: 20121211
  Receipt Date: 20121211
  Transmission Date: 20130627
  Serious: Yes (Death)
  Sender: FDA-Public Use
  Company Number: 2012-1390

PATIENT
  Age: 73 Year
  Sex: Male
  Weight: 125 kg

DRUGS (4)
  1. CARFILZOMIB [Suspect]
     Indication: MULTIPLE MYELOMA
  2. POMALIDOMIDE [Suspect]
     Indication: MULTIPLE MYELOMA
  3. DEXAMETHASONE [Suspect]
     Indication: MULTIPLE MYELOMA
  4. ASPIRIN [Suspect]

REACTIONS (6)
  - Fall [None]
  - Unresponsive to stimuli [None]
  - Pulmonary embolism [None]
  - Deep vein thrombosis [None]
  - Mobility decreased [None]
  - Pneumonia [None]
